FAERS Safety Report 20385933 (Version 1)
Quarter: 2022Q1

REPORT INFORMATION
  Report Type: Spontaneous
  Country: US (occurrence: US)
  Receive Date: 20220127
  Receipt Date: 20220127
  Transmission Date: 20220424
  Serious: No
  Sender: FDA-Public Use
  Company Number: US-BAUSCH-BL-2022-002076

PATIENT
  Age: 63 Year
  Sex: Female
  Weight: 68.100 kg

DRUGS (3)
  1. LUMIFY [Suspect]
     Active Substance: BRIMONIDINE TARTRATE
     Indication: Ocular hyperaemia
     Dosage: SPORADICALLY
     Route: 047
  2. LUMIFY [Suspect]
     Active Substance: BRIMONIDINE TARTRATE
     Indication: Dry eye
     Route: 047
     Dates: start: 202112, end: 20220119
  3. ZIOPTAN [Concomitant]
     Active Substance: TAFLUPROST
     Indication: Product used for unknown indication

REACTIONS (4)
  - Instillation site pruritus [Not Recovered/Not Resolved]
  - Instillation site swelling [Unknown]
  - Therapeutic product effect decreased [Unknown]
  - Extra dose administered [Unknown]
